FAERS Safety Report 12334333 (Version 1)
Quarter: 2016Q2

REPORT INFORMATION
  Report Type: Spontaneous
  Country: US (occurrence: US)
  Receive Date: 20160504
  Receipt Date: 20160504
  Transmission Date: 20160815
  Serious: No
  Sender: FDA-Public Use
  Company Number: US-ABBVIE-15P-163-1385460-00

PATIENT
  Sex: Female

DRUGS (1)
  1. CREON [Suspect]
     Active Substance: PANCRELIPASE AMYLASE\PANCRELIPASE LIPASE\PANCRELIPASE PROTEASE
     Indication: PANCREATIC INSUFFICIENCY
     Route: 065

REACTIONS (13)
  - Gastrointestinal disorder [Unknown]
  - Pancreatitis [Unknown]
  - Piloerection [Unknown]
  - Gastrointestinal pain [Unknown]
  - Abdominal discomfort [Unknown]
  - Gastrointestinal oedema [Unknown]
  - Feeling cold [Unknown]
  - Malaise [Unknown]
  - Lactose intolerance [Unknown]
  - Flatulence [Unknown]
  - Diarrhoea [Unknown]
  - Blood glucose decreased [Unknown]
  - Abdominal pain upper [Unknown]
